FAERS Safety Report 17596480 (Version 3)
Quarter: 2020Q2

REPORT INFORMATION
  Report Type: Report from Study
  Country: None (occurrence: ES)
  Receive Date: 20200330
  Receipt Date: 20200404
  Transmission Date: 20200713
  Serious: Yes (Other)
  Sender: FDA-Public Use
  Company Number: ES-ABBVIE-20K-144-3331769-00

PATIENT
  Age: 76 Year
  Sex: Male

DRUGS (1)
  1. DUODOPA [Suspect]
     Active Substance: CARBIDOPA\LEVODOPA
     Indication: PARKINSON^S DISEASE
     Route: 050
     Dates: start: 20181120

REACTIONS (5)
  - Incorrect route of product administration [Unknown]
  - Wrong technique in device usage process [Unknown]
  - Abdominal pain [Recovered/Resolved]
  - Device expulsion [Recovered/Resolved]
  - Device dislocation [Recovered/Resolved]

NARRATIVE: CASE EVENT DATE: 20200326
